FAERS Safety Report 8313813-0 (Version None)
Quarter: 2012Q2

REPORT INFORMATION
  Report Type: 
  Country: None (occurrence: None)
  Receive Date: 20120426
  Receipt Date: 20120418
  Transmission Date: 20120825
  Serious: Yes (Hospitalization)
  Sender: FDA-Public Use
  Company Number: CA-BRISTOL-MYERS SQUIBB COMPANY-15338007

PATIENT
  Age: 63 Year
  Sex: Female

DRUGS (8)
  1. METHOTREXATE [Suspect]
  2. PREDNISONE TAB [Concomitant]
  3. DIOVAN [Concomitant]
  4. FOLIC ACID [Concomitant]
  5. VITAMIN D [Concomitant]
  6. MELOXICAM [Concomitant]
  7. TRAMADOL HYDROCHLORIDE/ACETAMINOPHEN [Concomitant]
  8. ORENCIA [Suspect]
     Indication: RHEUMATOID ARTHRITIS
     Dosage: NO OF INF:24 RECENT INFUSION ON 19OCT10,08NOV11,10DEC2011,18APR12.BTCH NO-1G64569.EX-MA2014.
     Route: 042
     Dates: start: 20100503

REACTIONS (6)
  - DIARRHOEA [None]
  - ENTERITIS [None]
  - TOOTH INFECTION [None]
  - ORAL HERPES [None]
  - WEIGHT DECREASED [None]
  - SKIN LESION [None]
